FAERS Safety Report 9414098 (Version 1)
Quarter: 2013Q3

REPORT INFORMATION
  Report Type: Spontaneous
  Country: US (occurrence: US)
  Receive Date: 20130723
  Receipt Date: 20130723
  Transmission Date: 20140515
  Serious: No
  Sender: FDA-Public Use
  Company Number: US-BIOGENIDEC-2013BI006189

PATIENT
  Sex: Male

DRUGS (3)
  1. AVONEX [Suspect]
     Indication: MULTIPLE SCLEROSIS
     Route: 030
     Dates: start: 20051027, end: 201205
  2. AVONEX [Suspect]
     Indication: MULTIPLE SCLEROSIS
     Route: 030
     Dates: start: 201205
  3. METFORMIN [Concomitant]
     Indication: TYPE 2 DIABETES MELLITUS
     Route: 048

REACTIONS (5)
  - Adverse drug reaction [Not Recovered/Not Resolved]
  - Influenza like illness [Recovered/Resolved]
  - White blood cell count decreased [Not Recovered/Not Resolved]
  - Hepatic enzyme increased [Recovered/Resolved]
  - Platelet count decreased [Not Recovered/Not Resolved]
